FAERS Safety Report 9769868 (Version 1)
Quarter: 2013Q4

REPORT INFORMATION
  Report Type: Spontaneous
  Country: US (occurrence: US)
  Receive Date: 20131218
  Receipt Date: 20131218
  Transmission Date: 20140711
  Serious: No
  Sender: FDA-Public Use
  Company Number: US-VERTEX PHARMACEUTICALS INC-AE-2011-000938

PATIENT
  Age: 55 Year
  Sex: Male
  Weight: 72.27 kg

DRUGS (5)
  1. INCIVEK [Suspect]
     Indication: HEPATITIS C
     Route: 048
     Dates: start: 20110705
  2. RIBAPAK [Concomitant]
     Indication: HEPATITIS C
     Route: 048
     Dates: start: 20110705
  3. PEGASYS [Concomitant]
     Indication: HEPATITIS C
     Route: 058
     Dates: start: 20110705
  4. METOPROLOL [Concomitant]
     Indication: HYPERTENSION
     Route: 048
  5. VITAMIN D [Concomitant]
     Route: 048

REACTIONS (7)
  - Insomnia [Unknown]
  - Disturbance in attention [Unknown]
  - Pruritus [Unknown]
  - Fatigue [Unknown]
  - Diarrhoea [Unknown]
  - Anorectal discomfort [Unknown]
  - Anal pruritus [Unknown]
